FAERS Safety Report 4819414-0 (Version None)
Quarter: 2005Q4

REPORT INFORMATION
  Report Type: 
  Country: None (occurrence: None)
  Receive Date: 20051031
  Receipt Date: 20050726
  Transmission Date: 20060501
  Serious: No
  Sender: FDA-Public Use
  Company Number: 2005PV000651

PATIENT
  Age: 73 Year
  Sex: Male

DRUGS (12)
  1. SYMLIN [Suspect]
     Indication: DIABETES MELLITUS NON-INSULIN-DEPENDENT
     Dosage: 12 MCG; X1; SC; 60 MCG; TID; SC
     Route: 058
     Dates: start: 20050726
  2. SYMLIN [Suspect]
     Indication: DIABETES MELLITUS NON-INSULIN-DEPENDENT
     Dosage: 12 MCG; X1; SC; 60 MCG; TID; SC
     Route: 058
     Dates: start: 20050726
  3. ALLOPURINOL [Concomitant]
  4. WARFARIN SODIUM [Concomitant]
  5. ISOSORBIDE [Concomitant]
  6. FUROSEMIDE [Concomitant]
  7. CALCITRIOL [Concomitant]
  8. POTASSIUM CHLORIDE [Concomitant]
  9. METOLAZONE [Concomitant]
  10. GLYBURIDE [Concomitant]
  11. NOVOLIN N [Concomitant]
  12. NOVOLIN R [Concomitant]

REACTIONS (2)
  - BLOOD GLUCOSE INCREASED [None]
  - MEDICATION ERROR [None]
